FAERS Safety Report 26007680 (Version 1)
Quarter: 2025Q4

REPORT INFORMATION
  Report Type: Report from Study
  Country: US (occurrence: US)
  Receive Date: 20251106
  Receipt Date: 20251106
  Transmission Date: 20260118
  Serious: No
  Sender: MALLINCKRODT
  Company Number: US-MALLINCKRODT-MNK202506513

PATIENT
  Age: 67 Year
  Sex: Female

DRUGS (2)
  1. TERLIPRESSIN [Suspect]
     Active Substance: TERLIPRESSIN
     Indication: Hepatorenal syndrome
     Dates: start: 20231014, end: 202310
  2. TERLIPRESSIN [Suspect]
     Active Substance: TERLIPRESSIN
     Dates: start: 202310, end: 20231019

REACTIONS (1)
  - Blood creatinine increased [Recovered/Resolved]

NARRATIVE: CASE EVENT DATE: 20231017
